FAERS Safety Report 9486988 (Version 3)
Quarter: 2013Q4

REPORT INFORMATION
  Report Type: Spontaneous
  Country: IT (occurrence: None)
  Receive Date: 20130823
  Receipt Date: 20131022
  Transmission Date: 20140711
  Serious: Yes (Hospitalization)
  Sender: FDA-Public Use
  Company Number: AUR-APL-2013-06892

PATIENT
  Age: 86 Year
  Sex: Female

DRUGS (9)
  1. LOSARTAN/HYDROCHLOROTHIAZIDE [Suspect]
     Indication: PRODUCT USED FOR UNKNOWN INDICATION
     Route: 048
     Dates: start: 20121201, end: 20130808
  2. TRIATEC [Suspect]
     Indication: HYPERTENSION
     Route: 048
     Dates: start: 20120501, end: 20130807
  3. FUROSEMIDE [Suspect]
     Indication: PRODUCT USED FOR UNKNOWN INDICATION
     Route: 048
     Dates: start: 20110901, end: 20130808
  4. EUTIROX (LEVOTHYROXINE SODIUM) [Concomitant]
  5. CARDURA (DOXAZOSIN MESILATE) [Concomitant]
  6. ESOMEPRAZOLE (ESOMEPRAZOLE) [Concomitant]
  7. AMLODIPINE (AMLODIPINE) [Concomitant]
  8. DIGOXIN (DIGOXIN) [Concomitant]
  9. SPIRONOLACTONE (SPIRONOOLACTONE) [Concomitant]

REACTIONS (3)
  - Hyponatraemia [None]
  - Hypotension [None]
  - Presyncope [None]
